FAERS Safety Report 9029437 (Version 2)
Quarter: 2013Q1

REPORT INFORMATION
  Report Type: Spontaneous
  Country: US (occurrence: US)
  Receive Date: 20130125
  Receipt Date: 20130213
  Transmission Date: 20140127
  Serious: Yes (Death)
  Sender: FDA-Public Use
  Company Number: US-CELGENEUS-163-21660-13012962

PATIENT
  Age: 69 Year
  Sex: Male

DRUGS (6)
  1. ABRAXANE [Suspect]
     Indication: PANCREATIC CARCINOMA
     Route: 065
     Dates: start: 20121127, end: 20121127
  2. SYNTHROID [Concomitant]
     Indication: HYPOTHYROIDISM
     Dosage: 150 MICROGRAM
     Route: 065
  3. METOPROLOL [Concomitant]
     Indication: HYPERTENSION
     Dosage: 50 MILLIGRAM
     Route: 065
  4. TRAMADOL [Concomitant]
     Indication: PAIN
     Dosage: 200 MILLIGRAM
     Route: 065
     Dates: start: 20120905, end: 20121212
  5. LISINOPRIL [Concomitant]
     Indication: HYPERTENSION
     Dosage: 20 MILLIGRAM
     Route: 065
  6. HYDROMORPHONE [Concomitant]
     Indication: PAIN
     Dosage: 2 MILLIGRAM
     Route: 065
     Dates: start: 20121002, end: 20121212

REACTIONS (1)
  - Pancreatic carcinoma [Fatal]
